FAERS Safety Report 24675963 (Version 1)
Quarter: 2024Q4

REPORT INFORMATION
  Report Type: Spontaneous
  Country: US (occurrence: US)
  Receive Date: 20241128
  Receipt Date: 20241128
  Transmission Date: 20250115
  Serious: Yes (Hospitalization)
  Sender: ELI LILLY AND COMPANY
  Company Number: US-ELI_LILLY_AND_COMPANY-US202411010755

PATIENT
  Age: 11 Year
  Sex: Male

DRUGS (3)
  1. ATOMOXETINE HYDROCHLORIDE [Interacting]
     Active Substance: ATOMOXETINE HYDROCHLORIDE
     Indication: Attention deficit hyperactivity disorder
     Dosage: 10 MG, QAM
     Route: 048
     Dates: start: 201912
  2. ATOMOXETINE HYDROCHLORIDE [Interacting]
     Active Substance: ATOMOXETINE HYDROCHLORIDE
     Indication: Anxiety
  3. FLUOXETINE HYDROCHLORIDE [Interacting]
     Active Substance: FLUOXETINE HYDROCHLORIDE
     Indication: Obsessive-compulsive disorder
     Dosage: 10 MG, QAM
     Route: 048
     Dates: start: 202001

REACTIONS (5)
  - Obsessive-compulsive disorder [Recovered/Resolved]
  - Aggression [Recovered/Resolved]
  - Suicidal ideation [Recovered/Resolved]
  - Agitation [Recovered/Resolved]
  - Drug interaction [Recovered/Resolved]
